FAERS Safety Report 16643612 (Version 2)
Quarter: 2019Q4

REPORT INFORMATION
  Report Type: Spontaneous
  Country: US (occurrence: US)
  Receive Date: 20190729
  Receipt Date: 20191217
  Transmission Date: 20200122
  Serious: No
  Sender: FDA-Public Use
  Company Number: US-PFIZER INC-2019323498

PATIENT
  Age: 66 Year
  Sex: Female

DRUGS (1)
  1. IBRANCE [Suspect]
     Active Substance: PALBOCICLIB
     Dosage: 125 MG, CYCLIC (FOR 21 DAYS ON, 7 DAYS OFF)
     Route: 048
     Dates: start: 20190703

REACTIONS (6)
  - Onychalgia [Unknown]
  - Taste disorder [Unknown]
  - Diarrhoea [Unknown]
  - Decreased appetite [Unknown]
  - Nail disorder [Unknown]
  - Fatigue [Unknown]
